FAERS Safety Report 6976047-8 (Version None)
Quarter: 2010Q3

REPORT INFORMATION
  Report Type: 
  Country: None (occurrence: None)
  Receive Date: 20100910
  Receipt Date: 20100831
  Transmission Date: 20110219
  Serious: Yes (Hospitalization)
  Sender: FDA-Public Use
  Company Number: FR-PFIZER INC-2010109255

PATIENT
  Age: 59 Year
  Sex: Female

DRUGS (9)
  1. FARMORUBICINE [Suspect]
     Indication: HEPATIC NEOPLASM MALIGNANT
     Dosage: 100 MG, SINGLE
     Route: 025
     Dates: start: 20100526, end: 20100526
  2. SUCRALFATE [Concomitant]
     Indication: PORTAL HYPERTENSION
  3. SUCRALFATE [Concomitant]
     Indication: VARICES OESOPHAGEAL
  4. PROPRANOLOL [Concomitant]
  5. ALDACTONE [Concomitant]
  6. LASIX [Concomitant]
  7. DIAMICRON [Concomitant]
  8. ACTOS [Concomitant]
  9. DIFFU K [Concomitant]

REACTIONS (1)
  - HEPATITIS TOXIC [None]
